FAERS Safety Report 12586590 (Version 2)
Quarter: 2016Q4

REPORT INFORMATION
  Report Type: Spontaneous
  Country: US (occurrence: US)
  Receive Date: 20160725
  Receipt Date: 20161114
  Transmission Date: 20170207
  Serious: No
  Sender: FDA-Public Use
  Company Number: US-PFIZER INC-2016327336

PATIENT
  Age: 71 Year
  Sex: Female

DRUGS (4)
  1. VIOXX [Suspect]
     Active Substance: ROFECOXIB
     Indication: ARTHRALGIA
  2. CELEBREX [Suspect]
     Active Substance: CELECOXIB
     Indication: ARTHRALGIA
  3. CELEBREX [Suspect]
     Active Substance: CELECOXIB
     Indication: MENISCUS INJURY
  4. VIOXX [Suspect]
     Active Substance: ROFECOXIB
     Indication: MENISCUS INJURY

REACTIONS (1)
  - Ulcer [Recovered/Resolved]
